FAERS Safety Report 23939493 (Version 2)
Quarter: 2024Q2

REPORT INFORMATION
  Report Type: Spontaneous
  Country: IT (occurrence: IT)
  Receive Date: 20240605
  Receipt Date: 20240614
  Transmission Date: 20240715
  Serious: Yes (Hospitalization, Other)
  Sender: FDA-Public Use
  Company Number: None

PATIENT
  Age: 81 Year
  Sex: Female
  Weight: 50 kg

DRUGS (1)
  1. ORENCIA [Suspect]
     Active Substance: ABATACEPT
     Indication: Rheumatoid arthritis
     Dosage: UNIT DOSE: 125 MG/ML.
     Route: 058
     Dates: start: 20230223, end: 202402

REACTIONS (2)
  - Pneumonia [Recovered/Resolved with Sequelae]
  - Malignant melanoma [Unknown]

NARRATIVE: CASE EVENT DATE: 20240305
